FAERS Safety Report 10263425 (Version 1)
Quarter: 2014Q2

REPORT INFORMATION
  Report Type: Spontaneous
  Country: US (occurrence: US)
  Receive Date: 20140626
  Receipt Date: 20140626
  Transmission Date: 20141212
  Serious: No
  Sender: FDA-Public Use
  Company Number: US-ASTRAZENECA-2014SE31868

PATIENT
  Age: 54 Year
  Sex: Male
  Weight: 117.9 kg

DRUGS (9)
  1. BRILINTA [Suspect]
     Indication: MYOCARDIAL INFARCTION
     Route: 048
     Dates: start: 201308
  2. BRILINTA [Suspect]
     Indication: STENT PLACEMENT
     Route: 048
     Dates: start: 201308
  3. LISINOPRIL [Suspect]
     Indication: MYOCARDIAL INFARCTION
     Route: 048
     Dates: start: 201308
  4. LISINOPRIL [Suspect]
     Indication: STENT PLACEMENT
     Route: 048
     Dates: start: 201308
  5. ATORVASTATIN [Concomitant]
     Indication: BLOOD CHOLESTEROL ABNORMAL
     Route: 048
     Dates: start: 201408
  6. CARVEDILOL [Concomitant]
     Indication: MYOCARDIAL INFARCTION
     Route: 048
     Dates: start: 201308
  7. CARVEDILOL [Concomitant]
     Indication: STENT PLACEMENT
     Route: 048
     Dates: start: 201308
  8. ASPIRIN [Concomitant]
     Indication: MYOCARDIAL INFARCTION
     Dates: start: 201308
  9. ASPIRIN [Concomitant]
     Indication: STENT PLACEMENT
     Dates: start: 201308

REACTIONS (1)
  - Haemorrhoids [Not Recovered/Not Resolved]
